FAERS Safety Report 9614134 (Version 2)
Quarter: 2013Q4

REPORT INFORMATION
  Report Type: Spontaneous
  Country: US (occurrence: US)
  Receive Date: 20131011
  Receipt Date: 20131028
  Transmission Date: 20140711
  Serious: Yes (Hospitalization)
  Sender: FDA-Public Use
  Company Number: US-BIOGENIDEC-2013BI096811

PATIENT
  Age: 73 Year
  Sex: Female

DRUGS (5)
  1. AVONEX [Suspect]
     Indication: MULTIPLE SCLEROSIS
     Route: 030
     Dates: start: 20070129
  2. METHYLPHENIDATE HCI [Concomitant]
  3. PROMETHAZINE HCI [Concomitant]
  4. TRAMADOL HCI [Concomitant]
  5. VITAMIN D3 [Concomitant]

REACTIONS (1)
  - Multiple sclerosis relapse [Recovered/Resolved]
